FAERS Safety Report 8757986 (Version 1)
Quarter: 2012Q4

REPORT INFORMATION
  Report Type: 
  Country: MT (occurrence: MT)
  Receive Date: 20120829
  Receipt Date: 20120829
  Transmission Date: 20130627
  Serious: Yes (Other)
  Sender: FDA-Public Use
  Company Number: MT-AMGEN-MLTSP2012053393

PATIENT
  Age: 54 Year
  Sex: Female

DRUGS (5)
  1. PROLIA [Suspect]
     Indication: OSTEOPOROSIS
     Dosage: UNK
     Dates: start: 201203
  2. COVERSYL                           /00790702/ [Concomitant]
     Indication: HYPERTENSION
     Dosage: UNK
  3. NATRILIX                           /00340101/ [Concomitant]
     Indication: HYPERTENSION
     Dosage: UNK
  4. ANALGESICS [Concomitant]
     Indication: BACK PAIN
     Dosage: UNK
  5. HYPNOTICS AND SEDATIVES [Concomitant]
     Indication: INSOMNIA

REACTIONS (5)
  - Syncope [Not Recovered/Not Resolved]
  - Hypertension [Unknown]
  - Insomnia [Not Recovered/Not Resolved]
  - Malaise [Not Recovered/Not Resolved]
  - Quality of life decreased [Unknown]
